FAERS Safety Report 16527404 (Version 2)
Quarter: 2019Q3

REPORT INFORMATION
  Report Type: Report from Study
  Country: US (occurrence: US)
  Receive Date: 20190704
  Receipt Date: 20190722
  Transmission Date: 20191004
  Serious: Yes (Hospitalization)
  Sender: FDA-Public Use
  Company Number: US-BAUSCH-BL-2019-019111

PATIENT
  Age: 63 Year
  Sex: Male
  Weight: 73.55 kg

DRUGS (1)
  1. XIFAXAN [Suspect]
     Active Substance: RIFAXIMIN
     Indication: HEPATIC ENCEPHALOPATHY
     Route: 048
     Dates: start: 2011, end: 201902

REACTIONS (6)
  - Hospitalisation [Recovered/Resolved]
  - Dysstasia [Unknown]
  - Memory impairment [Unknown]
  - Nervousness [Unknown]
  - Therapy cessation [Unknown]
  - Feeling abnormal [Unknown]

NARRATIVE: CASE EVENT DATE: 2011
